FAERS Safety Report 7543783-4 (Version None)
Quarter: 2011Q2

REPORT INFORMATION
  Report Type: 
  Country: None (occurrence: None)
  Receive Date: 20110613
  Receipt Date: 20110526
  Transmission Date: 20111010
  Serious: No
  Sender: FDA-Public Use
  Company Number: US-B.I. PHARMACEUTICALS,INC./RIDGEFIELD-2011-BP-14098BP

PATIENT
  Age: 64 Year
  Sex: Male

DRUGS (6)
  1. TAMSULOSIN HCL [Concomitant]
     Indication: PROSTATOMEGALY
  2. OXYGEN [Concomitant]
     Indication: EMPHYSEMA
  3. DIOVAN HCT [Concomitant]
     Indication: HYPERTENSION
  4. PRILOSEC [Concomitant]
     Indication: ABDOMINAL DISCOMFORT
  5. COMBIVENT [Suspect]
     Indication: EMPHYSEMA
     Dosage: 6 PUF
     Route: 055
     Dates: start: 20040101
  6. ADVAIR DISKUS 100/50 [Concomitant]
     Indication: EMPHYSEMA

REACTIONS (1)
  - NOCTURNAL DYSPNOEA [None]
